FAERS Safety Report 21541593 (Version 1)
Quarter: 2022Q4

REPORT INFORMATION
  Report Type: Report from Study
  Country: US (occurrence: US)
  Receive Date: 20221102
  Receipt Date: 20221102
  Transmission Date: 20230113
  Serious: Yes (Other)
  Sender: FDA-Public Use
  Company Number: US-AZURITY PHARMACEUTICALS, INC.-US-2022ARB002738

PATIENT
  Age: 10 Year
  Sex: Female

DRUGS (7)
  1. METHOTREXATE [Suspect]
     Active Substance: METHOTREXATE
     Indication: Ependymoma
     Dosage: UNK
  2. CYCLOPHOSPHAMIDE [Suspect]
     Active Substance: CYCLOPHOSPHAMIDE
     Indication: Ependymoma
     Dosage: UNK
  3. TEMOZOLOMIDE [Suspect]
     Active Substance: TEMOZOLOMIDE
     Indication: Ependymoma
     Dosage: UNK
  4. ETOPOSIDE [Suspect]
     Active Substance: ETOPOSIDE
     Indication: Ependymoma
     Dosage: UNK
  5. ADRIAMYCIN [Suspect]
     Active Substance: DOXORUBICIN HYDROCHLORIDE
     Indication: Ependymoma
     Dosage: UNK
  6. VINCRISTINE [Suspect]
     Active Substance: VINCRISTINE
     Indication: Ependymoma
     Dosage: UNK
  7. CISPLATIN [Suspect]
     Active Substance: CISPLATIN
     Indication: Ependymoma
     Dosage: UNK

REACTIONS (2)
  - Myeloproliferative neoplasm [Recovered/Resolved]
  - Myelodysplastic syndrome [Recovered/Resolved]
